FAERS Safety Report 7329163 (Version 2)
Quarter: 2014Q2

REPORT INFORMATION
  Report Type: Spontaneous
  Country: US (occurrence: None)
  Receive Date: 20100305
  Receipt Date: 20140530
  Transmission Date: 20141212
  Serious: Yes (Hospitalization, Other)
  Sender: FDA-Public Use
  Company Number: 2010S1000764

PATIENT
  Age: 41 Year
  Sex: Female

DRUGS (4)
  1. FLEET PHOSPHO-SODA ORAL SALINE LAXATIVE, GINGER-LEMON FLAVOR (ORAL SOLUTION) [Suspect]
     Indication: SURGERY
     Dosage: 2 IN 1 DAYS
     Route: 048
     Dates: start: 20080918, end: 20080918
  2. ATENOLOL [Concomitant]
  3. CLONIDINE [Concomitant]
  4. METOPROLOL [Concomitant]

REACTIONS (12)
  - Renal injury [None]
  - Haemodialysis [None]
  - Treatment noncompliance [None]
  - Decreased appetite [None]
  - Sarcoidosis [None]
  - Dry mouth [None]
  - Headache [None]
  - Back pain [None]
  - Muscle twitching [None]
  - Hyperglycaemia [None]
  - Hyponatraemia [None]
  - Renal failure chronic [None]
